FAERS Safety Report 25754758 (Version 2)
Quarter: 2025Q3

REPORT INFORMATION
  Report Type: Report from Study
  Country: US (occurrence: US)
  Receive Date: 20250903
  Receipt Date: 20250913
  Transmission Date: 20251021
  Serious: Yes (Other)
  Sender: ABBVIE
  Company Number: US-ABBVIE-6379446

PATIENT
  Age: 60 Year
  Sex: Male

DRUGS (1)
  1. SKYRIZI [Suspect]
     Active Substance: RISANKIZUMAB-RZAA
     Indication: Crohn^s disease
     Route: 058
     Dates: start: 20241227

REACTIONS (13)
  - Haematological malignancy [Unknown]
  - Abdominal distension [Unknown]
  - Respiratory disorder [Unknown]
  - White blood cell count increased [Unknown]
  - Neutrophil count increased [Unknown]
  - Osteoporosis [Unknown]
  - Insomnia [Unknown]
  - Gastrointestinal disorder [Unknown]
  - Gastrointestinal inflammation [Unknown]
  - Blindness [Unknown]
  - Spinal disorder [Unknown]
  - Blood glucose abnormal [Unknown]
  - Intracranial mass [Unknown]
